FAERS Safety Report 10070850 (Version 1)
Quarter: 2014Q2

REPORT INFORMATION
  Report Type: Report from Study
  Country: US (occurrence: US)
  Receive Date: 20140410
  Receipt Date: 20140410
  Transmission Date: 20141212
  Serious: Yes (Death)
  Sender: FDA-Public Use
  Company Number: PHEH2014US007075

PATIENT
  Sex: 0

DRUGS (1)
  1. SANDOSTATIN LAR DEPOT [Suspect]

REACTIONS (1)
  - Death [Fatal]
